FAERS Safety Report 8031318-1 (Version None)
Quarter: 2012Q1

REPORT INFORMATION
  Report Type: 
  Country: None (occurrence: None)
  Receive Date: 20120109
  Receipt Date: 20120105
  Transmission Date: 20120608
  Serious: Yes (Hospitalization)
  Sender: FDA-Public Use
  Company Number: US-GLAXOSMITHKLINE-A0960427A

PATIENT
  Age: 84 Year
  Sex: Female
  Weight: 59.2 kg

DRUGS (1)
  1. ALKERAN [Suspect]
     Route: 065

REACTIONS (1)
  - HEADACHE [None]
